FAERS Safety Report 5874790-5 (Version None)
Quarter: 2008Q3

REPORT INFORMATION
  Report Type: 
  Country: None (occurrence: None)
  Receive Date: 20080908
  Receipt Date: 20080908
  Transmission Date: 20090109
  Serious: Yes (Death)
  Sender: FDA-Public Use
  Company Number: None

PATIENT
  Sex: Female
  Weight: 64.4108 kg

DRUGS (2)
  1. FENTANYL [Suspect]
     Indication: CHRONIC OBSTRUCTIVE PULMONARY DISEASE
     Dosage: ONE PATCH Q 2 DAYS TD
     Route: 062
     Dates: start: 20080304
  2. FENTANYL [Suspect]
     Dosage: ONE PATCH Q 3 DAYS TD
     Route: 062
     Dates: start: 20080307

REACTIONS (2)
  - PNEUMONIA ASPIRATION [None]
  - THERAPEUTIC AGENT TOXICITY [None]
